FAERS Safety Report 9755886 (Version 1)
Quarter: 2013Q4

REPORT INFORMATION
  Report Type: Spontaneous
  Country: US (occurrence: US)
  Receive Date: 20131213
  Receipt Date: 20131213
  Transmission Date: 20140711
  Serious: No
  Sender: FDA-Public Use
  Company Number: US-GLAXOSMITHKLINE-A1025647A

PATIENT
  Age: 75 Year
  Sex: Female
  Weight: 72.3 kg

DRUGS (4)
  1. WALGREENS NICOTINE TRANSDERMAL SYSTEM PATCH CLEAR, 21MG [Suspect]
     Indication: EX-TOBACCO USER
     Dates: start: 20130402, end: 20130405
  2. NICODERM CQ CLEAR 14MG [Suspect]
     Indication: EX-TOBACCO USER
  3. NICORETTE NICOTINE POLACRILEX MINT LOZENGE, 4MG [Suspect]
     Indication: EX-TOBACCO USER
     Dates: start: 20130604
  4. COUMADIN [Concomitant]

REACTIONS (10)
  - Salivary hypersecretion [Recovered/Resolved]
  - Productive cough [Recovered/Resolved]
  - Product quality issue [Unknown]
  - Application site erythema [Recovered/Resolved]
  - Application site papules [Recovered/Resolved]
  - Application site rash [Recovered/Resolved]
  - Application site reaction [Recovered/Resolved]
  - Application site pruritus [Recovered/Resolved]
  - Hypersensitivity [Recovered/Resolved]
  - Drug administration error [Unknown]
